FAERS Safety Report 4291622-X (Version None)
Quarter: 2004Q1

REPORT INFORMATION
  Report Type: 
  Country: None (occurrence: None)
  Receive Date: 20040211
  Receipt Date: 20031027
  Transmission Date: 20041129
  Serious: Yes (Hospitalization)
  Sender: FDA-Public Use
  Company Number: US-GLAXOSMITHKLINE-A0431736A

PATIENT
  Age: 30 Year
  Sex: Female

DRUGS (7)
  1. IMITREX [Suspect]
     Indication: MIGRAINE
     Dosage: 6MG SINGLE DOSE
     Route: 058
     Dates: start: 20031022, end: 20031022
  2. ORAL CONTRACEPTIVES [Concomitant]
  3. OXYCODONE HCL [Concomitant]
  4. MAXALT [Concomitant]
     Indication: MIGRAINE
     Route: 048
  5. FROVA [Concomitant]
     Indication: MIGRAINE
     Route: 048
  6. ZOMIG [Concomitant]
     Indication: MIGRAINE
     Route: 048
  7. AMERGE [Concomitant]
     Indication: MIGRAINE
     Route: 048

REACTIONS (7)
  - BLOOD CREATINE PHOSPHOKINASE MB INCREASED [None]
  - C-REACTIVE PROTEIN INCREASED [None]
  - CHEST PAIN [None]
  - ELECTROCARDIOGRAM ST SEGMENT ABNORMAL [None]
  - ELECTROCARDIOGRAM T WAVE INVERSION [None]
  - MYOCARDIAL INFARCTION [None]
  - TROPONIN I INCREASED [None]
